FAERS Safety Report 24578096 (Version 1)
Quarter: 2024Q4

REPORT INFORMATION
  Report Type: Spontaneous
  Country: GB (occurrence: GB)
  Receive Date: 20241104
  Receipt Date: 20241104
  Transmission Date: 20250115
  Serious: Yes (Other)
  Sender: ORGANON
  Company Number: None

PATIENT
  Age: 19 Year
  Sex: Female
  Weight: 47 kg

DRUGS (1)
  1. NEXPLANON [Suspect]
     Active Substance: ETONOGESTREL
     Dosage: FOR SUBDERMAL IMPLANT
     Route: 059
     Dates: start: 20240301

REACTIONS (3)
  - Pregnancy [Unknown]
  - Abortion spontaneous [Unknown]
  - Haemorrhage [Unknown]
